FAERS Safety Report 6545269-2 (Version None)
Quarter: 2010Q1

REPORT INFORMATION
  Report Type: 
  Country: None (occurrence: None)
  Receive Date: 20100121
  Receipt Date: 20090824
  Transmission Date: 20100710
  Serious: Yes (Other)
  Sender: FDA-Public Use
  Company Number: US-KINGPHARMUSA00001-K200901050

PATIENT
  Age: 54 Year
  Sex: Female
  Weight: 54.422 kg

DRUGS (3)
  1. EPIPEN [Suspect]
     Dosage: 0.3 MG, SINGLE
     Dates: start: 20090815, end: 20090815
  2. FLONASE [Concomitant]
     Indication: RESPIRATORY TRACT INFECTION VIRAL
     Dosage: UNK
  3. SINGULAIR [Concomitant]
     Indication: RESPIRATORY TRACT INFECTION VIRAL
     Dosage: UNK

REACTIONS (9)
  - ACCIDENTAL EXPOSURE [None]
  - BONE PAIN [None]
  - INJECTION SITE ANAESTHESIA [None]
  - INJECTION SITE COLDNESS [None]
  - INJECTION SITE DISCOLOURATION [None]
  - INJECTION SITE PAIN [None]
  - INJECTION SITE PALLOR [None]
  - NAIL INJURY [None]
  - SKELETAL INJURY [None]
